FAERS Safety Report 7531829-9 (Version None)
Quarter: 2011Q2

REPORT INFORMATION
  Report Type: 
  Country: None (occurrence: None)
  Receive Date: 20110608
  Receipt Date: 20110601
  Transmission Date: 20111010
  Serious: Yes (Other)
  Sender: FDA-Public Use
  Company Number: US-PFIZER INC-2011120601

PATIENT

DRUGS (1)
  1. VFEND [Suspect]
     Dosage: UNK

REACTIONS (2)
  - DRUG LEVEL DECREASED [None]
  - MALABSORPTION [None]
